FAERS Safety Report 20333390 (Version 1)
Quarter: 2022Q1

REPORT INFORMATION
  Report Type: Spontaneous
  Country: US (occurrence: US)
  Receive Date: 20220113
  Receipt Date: 20220113
  Transmission Date: 20220423
  Serious: No
  Sender: FDA-Public Use
  Company Number: US-PFIZER INC-2021777418

PATIENT
  Age: 57 Year
  Sex: Female

DRUGS (3)
  1. XELJANZ [Suspect]
     Active Substance: TOFACITINIB CITRATE
     Indication: Rheumatoid arthritis
     Dosage: 5 MG, 2X/DAY
     Route: 048
     Dates: start: 20210517
  2. METHOTREXATE [Concomitant]
     Active Substance: METHOTREXATE
     Dosage: 8 PILLS A WEEK
  3. MELOXICAM [Concomitant]
     Active Substance: MELOXICAM
     Dosage: UNK, 1X/DAY

REACTIONS (3)
  - Product dose omission issue [Unknown]
  - Pain [Recovering/Resolving]
  - Pain in extremity [Unknown]
